FAERS Safety Report 20058430 (Version 1)
Quarter: 2021Q4

REPORT INFORMATION
  Report Type: Spontaneous
  Country: CN (occurrence: CN)
  Receive Date: 20211111
  Receipt Date: 20211111
  Transmission Date: 20220303
  Serious: Yes (Hospitalization)
  Sender: FDA-Public Use
  Company Number: CN-PFIZER INC-202101484211

PATIENT
  Sex: Male

DRUGS (3)
  1. PIPERACILLIN SODIUM\TAZOBACTAM SODIUM [Suspect]
     Active Substance: PIPERACILLIN SODIUM\TAZOBACTAM SODIUM
     Indication: Anti-infective therapy
     Dosage: 4.5 G, Q8H (ONCE EVERY 8 HOURS)
     Route: 041
     Dates: start: 20211018, end: 20211021
  2. MOXIFLOXACIN [Suspect]
     Active Substance: MOXIFLOXACIN
     Indication: Anti-infective therapy
     Dosage: 0.4 G, Q.D (ONCE A DAY)
     Route: 041
     Dates: start: 20211018, end: 20211020
  3. SODIUM CHLORIDE [Concomitant]
     Active Substance: SODIUM CHLORIDE
     Indication: Vehicle solution use
     Dosage: 100 ML, Q.D (ONCE A DAY)
     Route: 041
     Dates: start: 20211018, end: 20211021

REACTIONS (3)
  - Rash erythematous [Recovering/Resolving]
  - Dermatitis allergic [Recovering/Resolving]
  - Disorganised speech [Recovering/Resolving]

NARRATIVE: CASE EVENT DATE: 20211019
